FAERS Safety Report 15742328 (Version 1)
Quarter: 2018Q4

REPORT INFORMATION
  Report Type: Spontaneous
  Country: US (occurrence: US)
  Receive Date: 20181219
  Receipt Date: 20181219
  Transmission Date: 20190205
  Serious: Yes (Hospitalization)
  Sender: FDA-Public Use
  Company Number: US-DSJP-DSU-2018-152691

PATIENT

DRUGS (6)
  1. ASPIRIN                            /00002701/ [Suspect]
     Active Substance: ASPIRIN
     Indication: PRODUCT USED FOR UNKNOWN INDICATION
     Dosage: 81 MG, QD
     Route: 048
  2. COREG [Concomitant]
     Active Substance: CARVEDILOL
     Indication: PRODUCT USED FOR UNKNOWN INDICATION
     Dosage: UNK, QD [ONCE AT NIGHT]
     Route: 065
  3. SAVAYSA [Suspect]
     Active Substance: EDOXABAN TOSYLATE
     Indication: PROPHYLAXIS
     Dosage: UNK, QD
     Route: 065
     Dates: start: 2014
  4. PLAVIX [Suspect]
     Active Substance: CLOPIDOGREL BISULFATE
     Indication: PRODUCT USED FOR UNKNOWN INDICATION
     Dosage: UNK, QD
     Route: 048
     Dates: start: 201811
  5. ASPIRIN                            /00002701/ [Suspect]
     Active Substance: ASPIRIN
     Indication: PRODUCT USED FOR UNKNOWN INDICATION
     Dosage: 325 MG, QD
     Route: 048
  6. LOSARTAN. [Concomitant]
     Active Substance: LOSARTAN
     Indication: PRODUCT USED FOR UNKNOWN INDICATION
     Route: 065

REACTIONS (10)
  - Musculoskeletal pain [Recovered/Resolved]
  - Tongue haemorrhage [Recovered/Resolved]
  - Lower respiratory tract infection [Recovered/Resolved]
  - Ear disorder [Recovered/Resolved]
  - Stent placement [Recovered/Resolved]
  - Dyschezia [Recovered/Resolved]
  - Abdominal discomfort [Recovered/Resolved]
  - Dizziness [Recovering/Resolving]
  - Complication associated with device [Recovered/Resolved]
  - Nasopharyngitis [Recovered/Resolved]

NARRATIVE: CASE EVENT DATE: 201809
